FAERS Safety Report 18706481 (Version 3)
Quarter: 2021Q1

REPORT INFORMATION
  Report Type: Spontaneous
  Country: US (occurrence: US)
  Receive Date: 20210106
  Receipt Date: 20210210
  Transmission Date: 20210419
  Serious: No
  Sender: FDA-Public Use
  Company Number: US-ASTRAZENECA-2020SF65909

PATIENT
  Age: 64 Year
  Sex: Male
  Weight: 94.3 kg

DRUGS (14)
  1. BYDUREON [Suspect]
     Active Substance: EXENATIDE
     Indication: THYROID DISORDER
     Route: 058
     Dates: start: 20130501
  2. BYDUREON [Suspect]
     Active Substance: EXENATIDE
     Indication: THYROID DISORDER
     Route: 058
  3. FARXIGA [Suspect]
     Active Substance: DAPAGLIFLOZIN PROPANEDIOL
     Dosage: 10.0MG UNKNOWN
     Route: 048
  4. BYDUREON [Suspect]
     Active Substance: EXENATIDE
     Indication: TYPE 2 DIABETES MELLITUS
     Route: 058
  5. METFORMIN [Concomitant]
     Active Substance: METFORMIN HYDROCHLORIDE
     Dosage: 1000
  6. SYNTHROID [Concomitant]
     Active Substance: LEVOTHYROXINE SODIUM
  7. BYDUREON [Suspect]
     Active Substance: EXENATIDE
     Indication: TYPE 2 DIABETES MELLITUS
     Route: 058
     Dates: start: 20130501
  8. LIVALO [Concomitant]
     Active Substance: PITAVASTATIN CALCIUM
     Indication: BLOOD CHOLESTEROL
  9. LISINOPRIL. [Concomitant]
     Active Substance: LISINOPRIL
     Dosage: 2.5
  10. MULTI VITAMIN [Concomitant]
     Active Substance: VITAMINS
  11. LOW DOSE ASPIRIN [Concomitant]
     Active Substance: ASPIRIN
  12. STARLIX [Concomitant]
     Active Substance: NATEGLINIDE
     Dosage: 60
  13. VITAMIN D [Concomitant]
     Active Substance: VITAMIN D NOS
  14. VASCEPA [Concomitant]
     Active Substance: ICOSAPENT ETHYL

REACTIONS (10)
  - Injection site mass [Unknown]
  - Device leakage [Unknown]
  - Intentional device misuse [Unknown]
  - Product dose omission issue [Unknown]
  - Off label use [Unknown]
  - Hypersensitivity [Unknown]
  - Incorrect dose administered by device [Unknown]
  - Urticaria [Unknown]
  - Drug delivery system malfunction [Unknown]
  - Gastrointestinal pain [Unknown]
